FAERS Safety Report 11525628 (Version 3)
Quarter: 2015Q4

REPORT INFORMATION
  Report Type: Spontaneous
  Country: US (occurrence: None)
  Receive Date: 20150918
  Receipt Date: 20151009
  Transmission Date: 20160304
  Serious: Yes (Life-Threatening, Hospitalization, Other)
  Sender: FDA-Public Use
  Company Number: US-MDT-ADR-2015-01817

PATIENT
  Age: 50 Year
  Sex: Male

DRUGS (2)
  1. BUPIVACAINE INTRATHECAL 25 MG/ML [Suspect]
     Active Substance: BUPIVACAINE
     Dosage: 17.5 MG/DAY
  2. COMPOUNDED BACLOFEN INTRATHECAL 2247 MCG/ML [Suspect]
     Active Substance: BACLOFEN
     Indication: PAIN
     Dosage: 1573 MCG/DAY

REACTIONS (3)
  - Device malfunction [None]
  - Urosepsis [None]
  - Seizure [None]
